FAERS Safety Report 4460276-1 (Version None)
Quarter: 2004Q3

REPORT INFORMATION
  Report Type: 
  Country: None (occurrence: None)
  Receive Date: 20040928
  Receipt Date: 20040226
  Transmission Date: 20050211
  Serious: No
  Sender: FDA-Public Use
  Company Number: US-GLAXOSMITHKLINE-A0500128A

PATIENT
  Age: 37 Year
  Sex: Male

DRUGS (7)
  1. SEREVENT [Suspect]
     Route: 055
     Dates: start: 20040225, end: 20040225
  2. EFFEXOR [Concomitant]
  3. TOPAMAX [Concomitant]
  4. LIPITOR [Concomitant]
  5. TRICOR [Concomitant]
  6. WELCHOL [Concomitant]
  7. PROTONIX [Concomitant]

REACTIONS (1)
  - DIZZINESS [None]
